FAERS Safety Report 6676811-9 (Version None)
Quarter: 2010Q2

REPORT INFORMATION
  Report Type: 
  Country: None (occurrence: None)
  Receive Date: 20100412
  Receipt Date: 20100107
  Transmission Date: 20101027
  Serious: Yes (Death)
  Sender: FDA-Public Use
  Company Number: NL-WYE-G05871210

PATIENT

DRUGS (1)
  1. SIROLIMUS [Suspect]
     Indication: PARANEOPLASTIC SYNDROME
     Dosage: UNK

REACTIONS (1)
  - DEATH [None]
